FAERS Safety Report 5861995-2 (Version None)
Quarter: 2008Q3

REPORT INFORMATION
  Report Type: 
  Country: None (occurrence: None)
  Receive Date: 20080827
  Receipt Date: 20080122
  Transmission Date: 20090109
  Serious: No
  Sender: FDA-Public Use
  Company Number: US-ABBOTT-07P-163-0377033-00

PATIENT
  Sex: Male
  Weight: 69.008 kg

DRUGS (2)
  1. NIASPAN [Suspect]
     Indication: HIGH DENSITY LIPOPROTEIN DECREASED
     Route: 048
     Dates: start: 20050215
  2. BIOTIN [Concomitant]
     Indication: DRUG USE FOR UNKNOWN INDICATION
     Route: 048

REACTIONS (4)
  - BENIGN NEOPLASM [None]
  - BLOOD GLUCOSE INCREASED [None]
  - CATARACT [None]
  - HAIR GROWTH ABNORMAL [None]
